FAERS Safety Report 20702557 (Version 1)
Quarter: 2022Q2

REPORT INFORMATION
  Report Type: Report from Study
  Country: DE (occurrence: DE)
  Receive Date: 20220412
  Receipt Date: 20220412
  Transmission Date: 20220721
  Serious: Yes (Hospitalization)
  Sender: FDA-Public Use
  Company Number: DE-KYOWAKIRIN-2022BKK005037

PATIENT

DRUGS (3)
  1. BUROSUMAB [Suspect]
     Active Substance: BUROSUMAB
     Indication: Hereditary hypophosphataemic rickets
     Dosage: UNK
     Route: 058
  2. BUROSUMAB [Suspect]
     Active Substance: BUROSUMAB
     Dosage: 20 MG
     Route: 058
     Dates: start: 20220329
  3. BUROSUMAB [Suspect]
     Active Substance: BUROSUMAB
     Dosage: 10 MG
     Route: 058
     Dates: start: 20180509

REACTIONS (2)
  - Oral mucosa haematoma [Not Recovered/Not Resolved]
  - Mouth cyst [Not Recovered/Not Resolved]

NARRATIVE: CASE EVENT DATE: 20220325
